FAERS Safety Report 17405837 (Version 1)
Quarter: 2020Q1

REPORT INFORMATION
  Report Type: Spontaneous
  Country: US (occurrence: US)
  Receive Date: 20200212
  Receipt Date: 20200212
  Transmission Date: 20200409
  Serious: No
  Sender: FDA-Public Use
  Company Number: US-BRISTOL-MYERS SQUIBB COMPANY-BMS-2020-010961

PATIENT
  Sex: Male
  Weight: 106.59 kg

DRUGS (1)
  1. OPDIVO [Suspect]
     Active Substance: NIVOLUMAB
     Indication: MALIGNANT MELANOMA
     Dosage: UNK, Q4WK
     Route: 042
     Dates: start: 201908

REACTIONS (9)
  - Intervertebral disc degeneration [Unknown]
  - Chondrocalcinosis pyrophosphate [Unknown]
  - Arthralgia [Unknown]
  - Asthenia [Unknown]
  - Gait disturbance [Unknown]
  - Musculoskeletal pain [Unknown]
  - Fatigue [Unknown]
  - Neuralgia [Unknown]
  - Weight decreased [Unknown]
